FAERS Safety Report 6338987-2 (Version None)
Quarter: 2009Q3

REPORT INFORMATION
  Report Type: 
  Country: None (occurrence: None)
  Receive Date: 20090903
  Receipt Date: 20090825
  Transmission Date: 20100115
  Serious: Yes (Other)
  Sender: FDA-Public Use
  Company Number: PHHY2009BR36786

PATIENT
  Age: 58 Year
  Sex: Female

DRUGS (2)
  1. ENABLEX [Suspect]
     Indication: BLADDER DILATATION
     Dosage: UNK
     Dates: start: 20090601, end: 20090811
  2. CORGARD [Concomitant]

REACTIONS (5)
  - ANEURYSM [None]
  - CYANOSIS [None]
  - HEADACHE [None]
  - SYNCOPE [None]
  - VISUAL IMPAIRMENT [None]
